FAERS Safety Report 24238107 (Version 1)
Quarter: 2024Q3

REPORT INFORMATION
  Report Type: Spontaneous
  Country: US (occurrence: None)
  Receive Date: 20240821
  Receipt Date: 20240821
  Transmission Date: 20241017
  Serious: Yes (Death)
  Sender: Public
  Company Number: None

PATIENT
  Sex: Male

DRUGS (2)
  1. MVASI [Suspect]
     Active Substance: BEVACIZUMAB-AWWB
     Indication: Neoplasm malignant
     Dosage: 400 MG EVERY 14 DAYS INTRAVENOUS?
     Dates: start: 20240612, end: 20240820
  2. OPDIVO [Suspect]
     Active Substance: NIVOLUMAB
     Indication: Neoplasm malignant
     Dosage: 240MG EVERY 14 DAYS INTRAVENOUS
     Route: 042
     Dates: start: 20240612, end: 20240820

REACTIONS (1)
  - Death [None]
